FAERS Safety Report 5479384-1 (Version None)
Quarter: 2007Q4

REPORT INFORMATION
  Report Type: 
  Country: None (occurrence: None)
  Receive Date: 20071003
  Receipt Date: 20071003
  Transmission Date: 20080405
  Serious: Yes (Hospitalization, Disabling)
  Sender: FDA-Public Use
  Company Number: None

PATIENT
  Age: 46 Year
  Sex: Male
  Weight: 81.6475 kg

DRUGS (2)
  1. INVEGA [Suspect]
     Indication: BIPOLAR DISORDER
     Dosage: 3 MG 1 TIME DAILY
     Dates: start: 20070509, end: 20070522
  2. INVEGA [Suspect]
     Indication: DELUSION
     Dosage: 3 MG 1 TIME DAILY
     Dates: start: 20070509, end: 20070522

REACTIONS (14)
  - ABNORMAL BEHAVIOUR [None]
  - BLOOD POTASSIUM DECREASED [None]
  - BLOOD SODIUM DECREASED [None]
  - CATARACT [None]
  - CHROMATOPSIA [None]
  - CRYING [None]
  - EUPHORIC MOOD [None]
  - HALLUCINATION, AUDITORY [None]
  - HOMICIDAL IDEATION [None]
  - IMPRISONMENT [None]
  - INSOMNIA [None]
  - ORAL INTAKE REDUCED [None]
  - PHYSICAL ASSAULT [None]
  - SKIN LACERATION [None]
